FAERS Safety Report 4606933-5 (Version None)
Quarter: 2005Q1

REPORT INFORMATION
  Report Type: 
  Country: None (occurrence: None)
  Receive Date: 20050309
  Receipt Date: 20050228
  Transmission Date: 20050727
  Serious: Yes (Death, Hospitalization, Other)
  Sender: FDA-Public Use
  Company Number: 2005-02-1791

PATIENT
  Age: 69 Year
  Sex: Male
  Weight: 84 kg

DRUGS (8)
  1. TEMODAR [Suspect]
     Indication: NEUROENDOCRINE CARCINOMA
     Dosage: 150 MG/M2 ORAL
     Route: 048
     Dates: start: 20030801, end: 20040429
  2. THALIDOMIDE [Suspect]
     Indication: NEUROENDOCRINE CARCINOMA
     Dosage: 200 MG QD ORAL
     Route: 048
     Dates: start: 20030801, end: 20040429
  3. DOXORUBICIN [Suspect]
     Indication: NEUROENDOCRINE TUMOUR
     Dosage: SEE IMAGE
     Dates: start: 20040601, end: 20040601
  4. DOXORUBICIN [Suspect]
     Indication: NEUROENDOCRINE TUMOUR
     Dosage: SEE IMAGE
     Dates: start: 20040601, end: 20040708
  5. DOXORUBICIN [Suspect]
     Indication: NEUROENDOCRINE TUMOUR
     Dosage: SEE IMAGE
     Dates: start: 20040708, end: 20040708
  6. OCTREOTIDE [Concomitant]
  7. ZOFRAN [Concomitant]
  8. SOLU-MEDROL [Concomitant]

REACTIONS (14)
  - ASTHENIA [None]
  - CD4 LYMPHOCYTES DECREASED [None]
  - CD8 LYMPHOCYTES DECREASED [None]
  - CYTOMEGALOVIRUS COLITIS [None]
  - CYTOMEGALOVIRUS INFECTION [None]
  - DIARRHOEA [None]
  - EATING DISORDER [None]
  - HERPES ZOSTER [None]
  - LIP PAIN [None]
  - LYMPHOCYTE COUNT DECREASED [None]
  - MYELITIS TRANSVERSE [None]
  - PARALYSIS [None]
  - STOMATITIS [None]
  - WHITE BLOOD CELL COUNT DECREASED [None]
